FAERS Safety Report 8201791-4 (Version None)
Quarter: 2012Q1

REPORT INFORMATION
  Report Type: 
  Country: None (occurrence: None)
  Receive Date: 20120312
  Receipt Date: 20120306
  Transmission Date: 20120608
  Serious: Yes (Hospitalization)
  Sender: FDA-Public Use
  Company Number: GR-PFIZER INC-2012060263

PATIENT
  Age: 45 Year
  Sex: Male

DRUGS (4)
  1. METHYLPREDNISOLONE [Suspect]
     Indication: DERMATOMYOSITIS
  2. CYCLOSPORINE [Suspect]
     Indication: RHEUMATOID ARTHRITIS
  3. METHYLPREDNISOLONE [Suspect]
     Indication: RHEUMATOID ARTHRITIS
  4. CYCLOSPORINE [Suspect]
     Indication: DERMATOMYOSITIS

REACTIONS (1)
  - MYCOBACTERIUM AVIUM COMPLEX INFECTION [None]
